FAERS Safety Report 6572796-4 (Version None)
Quarter: 2010Q1

REPORT INFORMATION
  Report Type: 
  Country: None (occurrence: None)
  Receive Date: 20100205
  Receipt Date: 20100128
  Transmission Date: 20100710
  Serious: Yes (Hospitalization)
  Sender: FDA-Public Use
  Company Number: CA-ABBOTT-09P-028-0613277-00

PATIENT
  Sex: Male
  Weight: 59.02 kg

DRUGS (3)
  1. LUPRON DEPOT [Suspect]
     Indication: PROSTATE CANCER
     Dates: start: 20090911
  2. ADALAT [Concomitant]
     Indication: DRUG USE FOR UNKNOWN INDICATION
  3. INSULIN [Concomitant]
     Indication: DRUG USE FOR UNKNOWN INDICATION

REACTIONS (5)
  - BALANCE DISORDER [None]
  - BLOOD URINE PRESENT [None]
  - DECREASED APPETITE [None]
  - INFECTION [None]
  - UNEVALUABLE EVENT [None]
